FAERS Safety Report 10078759 (Version 4)
Quarter: 2019Q2

REPORT INFORMATION
  Report Type: Spontaneous
  Country: US (occurrence: US)
  Receive Date: 20140415
  Receipt Date: 20190411
  Transmission Date: 20190711
  Serious: Yes (Other)
  Sender: FDA-Public Use
  Company Number: US-PFIZER INC-2014101180

PATIENT
  Sex: Male

DRUGS (1)
  1. VIAGRA [Suspect]
     Active Substance: SILDENAFIL CITRATE
     Dosage: 100 MG, UNK
     Route: 048

REACTIONS (4)
  - Chronic lymphocytic leukaemia [Not Recovered/Not Resolved]
  - Blood cholesterol increased [Unknown]
  - Dyspnoea [Unknown]
  - Blood pressure increased [Unknown]
